FAERS Safety Report 9936750 (Version 1)
Quarter: 2014Q1

REPORT INFORMATION
  Report Type: Spontaneous
  Country: US (occurrence: None)
  Receive Date: 20140107
  Receipt Date: 20140107
  Transmission Date: 20141002
  Serious: Yes (Other)
  Sender: FDA-Public Use
  Company Number: 2011AP002400

PATIENT
  Age: 64 Year
  Sex: Female
  Weight: 68.04 kg

DRUGS (10)
  1. LATANOPROST [Suspect]
     Indication: GLAUCOMA
     Route: 031
     Dates: start: 20110428, end: 2011
  2. TIOTROPIUM BROMIDE [Concomitant]
  3. LISINOPRIL [Concomitant]
  4. THEOPHYLLINE [Concomitant]
  5. DILTIAZEM HYDROCHLORIDE [Concomitant]
  6. SALBUTAMOL SULFATE [Concomitant]
  7. LATANOPROST [Concomitant]
  8. TIOTROPIUM BROMIDE [Concomitant]
  9. THEOPHLLINE [Concomitant]
  10. SALBUTAMOL SULFATE [Concomitant]

REACTIONS (4)
  - Oedema [None]
  - Eye pain [None]
  - Vision blurred [None]
  - Eyelid margin crusting [None]
